FAERS Safety Report 9432576 (Version 1)
Quarter: 2013Q3

REPORT INFORMATION
  Report Type: Spontaneous
  Country: US (occurrence: US)
  Receive Date: 20130731
  Receipt Date: 20130731
  Transmission Date: 20140515
  Serious: Yes (Hospitalization)
  Sender: FDA-Public Use
  Company Number: US-SANOFI-AVENTIS-2013SA075536

PATIENT
  Age: 33 Year
  Sex: Female

DRUGS (2)
  1. CHLOROQUINE PHOSPHATE [Suspect]
     Indication: SYSTEMIC LUPUS ERYTHEMATOSUS
     Route: 065
     Dates: start: 1974
  2. QUINACRINE [Concomitant]
     Indication: SYSTEMIC LUPUS ERYTHEMATOSUS
     Dates: start: 1974

REACTIONS (9)
  - Cardiomyopathy [Unknown]
  - Off label use [Unknown]
  - Ventricular hypertrophy [Unknown]
  - Dyspnoea [Unknown]
  - Hyperdynamic left ventricle [Unknown]
  - Cardiac murmur [Unknown]
  - Asthenia [Unknown]
  - Pulmonary arterial pressure increased [Unknown]
  - Pulmonary arterial wedge pressure increased [Unknown]
